FAERS Safety Report 21878321 (Version 2)
Quarter: 2023Q1

REPORT INFORMATION
  Report Type: Spontaneous
  Country: US (occurrence: US)
  Receive Date: 20230118
  Receipt Date: 20230120
  Transmission Date: 20230417
  Serious: Yes (Hospitalization, Other)
  Sender: FDA-Public Use
  Company Number: US-BRISTOL-MYERS SQUIBB COMPANY-2023-007675

PATIENT
  Age: 78 Year
  Sex: Female

DRUGS (3)
  1. REVLIMID [Suspect]
     Active Substance: LENALIDOMIDE
     Indication: Plasma cell myeloma
     Route: 048
     Dates: start: 202110
  2. REVLIMID [Suspect]
     Active Substance: LENALIDOMIDE
     Dosage: TAKE 1 CAPSULE BY MOUTH ONCE DAILY FOR 14 DAYS ON AND 7 DAYS OFF
     Route: 048
     Dates: start: 202212
  3. REVLIMID [Suspect]
     Active Substance: LENALIDOMIDE

REACTIONS (4)
  - Ulcer [Recovering/Resolving]
  - Gastrointestinal haemorrhage [Unknown]
  - Cellulitis [Unknown]
  - Off label use [Unknown]
